FAERS Safety Report 5311380-7 (Version None)
Quarter: 2007Q2

REPORT INFORMATION
  Report Type: 
  Country: None (occurrence: None)
  Receive Date: 20070430
  Receipt Date: 20070426
  Transmission Date: 20071010
  Serious: Yes (Hospitalization)
  Sender: FDA-Public Use
  Company Number: NL-GENENTECH-232686

PATIENT
  Sex: Female
  Weight: 60.9 kg

DRUGS (6)
  1. RITUXIMAB [Suspect]
     Dosage: 375 MG/M2, UNK
     Route: 042
     Dates: start: 20051122, end: 20060313
  2. FLUDARABINE [Suspect]
     Indication: CHRONIC LYMPHOCYTIC LEUKAEMIA
     Dosage: 25 MG/M2, UNK
     Route: 042
     Dates: start: 20051123, end: 20060315
  3. CYCLOPHOSPHAMIDE [Suspect]
     Indication: CHRONIC LYMPHOCYTIC LEUKAEMIA
     Dosage: 250 MG/ML, UNK
     Route: 042
     Dates: start: 20051123, end: 20060315
  4. VALACYCLOVIR HCL [Suspect]
     Indication: DRUG USE FOR UNKNOWN INDICATION
  5. PARACETAMOL [Concomitant]
     Indication: DRUG USE FOR UNKNOWN INDICATION
  6. PENTAMIDINE NEBULIZED [Concomitant]
     Indication: DRUG USE FOR UNKNOWN INDICATION
     Dosage: UNK, 1/MONTH

REACTIONS (1)
  - NERVOUS SYSTEM DISORDER [None]
